FAERS Safety Report 17520601 (Version 1)
Quarter: 2020Q1

REPORT INFORMATION
  Report Type: Spontaneous
  Country: GB (occurrence: GB)
  Receive Date: 20200309
  Receipt Date: 20200309
  Transmission Date: 20200409
  Serious: No
  Sender: FDA-Public Use
  Company Number: GB-EMD SERONO-9149044

PATIENT
  Age: 37 Year
  Sex: Female

DRUGS (4)
  1. AMITRIPTYLINE [Concomitant]
     Active Substance: AMITRIPTYLINE
     Indication: PRODUCT USED FOR UNKNOWN INDICATION
  2. MAVENCLAD [Suspect]
     Active Substance: CLADRIBINE
     Indication: MULTIPLE SCLEROSIS
     Dosage: FIRST YEAR FIRST WEEK THERAPY: TWO TABLETS ON DAY 1 AND ONE TABLET ON DAYS 2 TO 5.
     Route: 048
     Dates: start: 20190109, end: 20190113
  3. MAVENCLAD [Suspect]
     Active Substance: CLADRIBINE
     Dosage: FIRST YEAR SECOND WEEK THERAPY: TWO TABLETS ON DAY 1 AND ONE TABLET ON DAYS 2 TO 5.
     Route: 048
  4. MAVENCLAD [Suspect]
     Active Substance: CLADRIBINE
     Dosage: SECOND YEAR THERAPY
     Route: 048
     Dates: start: 20200213

REACTIONS (2)
  - Rash [Recovering/Resolving]
  - Skin tightness [Not Recovered/Not Resolved]

NARRATIVE: CASE EVENT DATE: 202002
